FAERS Safety Report 7123651-2 (Version None)
Quarter: 2010Q4

REPORT INFORMATION
  Report Type: 
  Country: None (occurrence: None)
  Receive Date: 20101125
  Receipt Date: 20101118
  Transmission Date: 20110411
  Serious: Yes (Hospitalization)
  Sender: FDA-Public Use
  Company Number: JP-BRISTOL-MYERS SQUIBB COMPANY-15254667

PATIENT
  Age: 72 Year
  Sex: Male
  Weight: 63 kg

DRUGS (3)
  1. CETUXIMAB [Suspect]
     Indication: GASTROOESOPHAGEAL CANCER
     Dosage: RECENT DOSE(3RD):19AUG10 RECENT DOSE(2ND):12AUG10
     Route: 042
     Dates: start: 20100804
  2. CISPLATIN [Suspect]
     Indication: GASTROOESOPHAGEAL CANCER
     Dosage: ON DAY 1 OF CYCLE.MOST RECENT INFUSION ON 04AUG2010,INTERR ON 24-AUG-2010 THERAPY DURATION:20 DAYS.
     Route: 042
     Dates: start: 20100804, end: 20100824
  3. XELODA [Suspect]
     Indication: GASTROOESOPHAGEAL CANCER
     Dosage: RECENT DOSE ON 18-AUG-2010;INTERR ON 24-AUG-2010 THERAPY DURATION:20 DAYS.
     Route: 048
     Dates: start: 20100804, end: 20100820

REACTIONS (1)
  - DECREASED APPETITE [None]
